FAERS Safety Report 6768472-5 (Version None)
Quarter: 2010Q2

REPORT INFORMATION
  Report Type: 
  Country: None (occurrence: None)
  Receive Date: 20100614
  Receipt Date: 20100609
  Transmission Date: 20101027
  Serious: Yes (Hospitalization)
  Sender: FDA-Public Use
  Company Number: FR-WYE-G05702910

PATIENT
  Age: 17 Year
  Sex: Male

DRUGS (5)
  1. ADVIL LIQUI-GELS [Suspect]
     Indication: INFLUENZA
     Dosage: UNKNOWN
     Route: 048
     Dates: start: 20100114, end: 20100101
  2. HOMEOPATIC PREPARATION [Suspect]
     Indication: URETHRITIS
     Dosage: UNKNOWN
     Route: 048
     Dates: start: 20091230, end: 20100114
  3. DOLIPRANE [Suspect]
     Indication: INFLUENZA
     Dosage: UNKNOWN
     Route: 048
     Dates: start: 20100114, end: 20100101
  4. TAMIFLU [Suspect]
     Indication: INFLUENZA
     Route: 048
     Dates: start: 20100114, end: 20100116
  5. MINOCYCLINE HCL [Suspect]
     Indication: URETHRITIS
     Dosage: UNKNOWN
     Route: 048
     Dates: start: 20091230, end: 20100114

REACTIONS (1)
  - DRUG RASH WITH EOSINOPHILIA AND SYSTEMIC SYMPTOMS [None]
